FAERS Safety Report 10180989 (Version 1)
Quarter: 2014Q2

REPORT INFORMATION
  Report Type: Spontaneous
  Country: US (occurrence: US)
  Receive Date: 20140519
  Receipt Date: 20140519
  Transmission Date: 20141212
  Serious: No
  Sender: FDA-Public Use
  Company Number: US-AMGEN INC.-USASP2014004454

PATIENT
  Age: 69 Year
  Sex: Female

DRUGS (8)
  1. PROLIA [Suspect]
     Indication: PRODUCT USED FOR UNKNOWN INDICATION
     Dosage: UNK
     Route: 065
     Dates: start: 201312
  2. COREG [Concomitant]
     Indication: THYROIDECTOMY
  3. CLONAZEPAM [Concomitant]
     Indication: THYROIDECTOMY
  4. LEVOTHYROXINE [Concomitant]
     Indication: THYROIDECTOMY
  5. PANTOPRAZOLE [Concomitant]
     Indication: GASTROOESOPHAGEAL REFLUX DISEASE
  6. MULTIVITAMINS [Concomitant]
  7. CALCIUM [Concomitant]
  8. VITAMIN D                          /00107901/ [Concomitant]

REACTIONS (3)
  - Peripheral swelling [Unknown]
  - Musculoskeletal stiffness [Not Recovered/Not Resolved]
  - Pain in extremity [Unknown]
